FAERS Safety Report 13907170 (Version 1)
Quarter: 2017Q3

REPORT INFORMATION
  Report Type: Report from Study
  Country: US (occurrence: US)
  Receive Date: 20170825
  Receipt Date: 20170825
  Transmission Date: 20171127
  Serious: Yes (Hospitalization)
  Sender: FDA-Public Use
  Company Number: US-SHIRE-US201718831

PATIENT
  Sex: Female

DRUGS (1)
  1. NATPARA (PARATHYROID HORMONE) [Suspect]
     Active Substance: PARATHYROID HORMONE
     Indication: HYPOPARATHYROIDISM
     Dosage: 50 MCG 1X/DAY:QD INJECTION
     Route: 065
     Dates: start: 20160511

REACTIONS (3)
  - Eye swelling [Unknown]
  - Paraesthesia [Unknown]
  - Rash [Unknown]
